FAERS Safety Report 8383168-4 (Version None)
Quarter: 2012Q2

REPORT INFORMATION
  Report Type: 
  Country: None (occurrence: None)
  Receive Date: 20120524
  Receipt Date: 20120515
  Transmission Date: 20120825
  Serious: Yes (Other)
  Sender: FDA-Public Use
  Company Number: JP-VERTEX PHARMACEUTICALS INC.-AE-2012-007330

PATIENT
  Age: 52 Year
  Sex: Female

DRUGS (7)
  1. TELAVIC (TELAPREVIR) [Suspect]
     Route: 048
     Dates: start: 20120330, end: 20120416
  2. PEGINTERFERON ALFA-2B [Concomitant]
     Indication: HEPATITIS C
     Route: 051
     Dates: start: 20120319, end: 20120416
  3. TELAVIC (TELAPREVIR) [Suspect]
     Indication: HEPATITIS C
     Route: 048
     Dates: start: 20120319, end: 20120329
  4. RIBAVIRIN [Concomitant]
     Indication: HEPATITIS C
     Route: 048
     Dates: start: 20120319, end: 20120416
  5. REBAMIPIDE [Concomitant]
     Route: 048
     Dates: start: 20120319, end: 20120416
  6. L-CARTIN [Concomitant]
     Route: 048
     Dates: start: 20120319, end: 20120416
  7. RABEPRAZOLE SODIUM [Concomitant]
     Route: 048
     Dates: start: 20120319, end: 20120416

REACTIONS (2)
  - NAUSEA [None]
  - DECREASED APPETITE [None]
